FAERS Safety Report 7867921-9 (Version None)
Quarter: 2011Q4

REPORT INFORMATION
  Report Type: 
  Country: None (occurrence: None)
  Receive Date: 20111024
  Receipt Date: 20111012
  Transmission Date: 20120403
  Serious: Yes (Other)
  Sender: FDA-Public Use
  Company Number: 2011SP048381

PATIENT
  Age: 58 Year
  Sex: Female
  Weight: 72.5755 kg

DRUGS (4)
  1. PREMARIN [Concomitant]
  2. MULTI-VITAMIN [Concomitant]
  3. CALCIUM + MAGNESIUM [Concomitant]
  4. AERIUS DUAL ACTION 12 HOUR (DESLORATADINE W/PSEUDOEPHEDRINE) [Suspect]
     Indication: PRODUCT USED FOR UNKNOWN INDICATION
     Dosage: 1 DF;ONCE;PO
     Route: 048

REACTIONS (7)
  - FATIGUE [None]
  - SWELLING FACE [None]
  - RESTLESSNESS [None]
  - SLEEP DISORDER [None]
  - PSYCHOMOTOR HYPERACTIVITY [None]
  - FORMICATION [None]
  - OEDEMA PERIPHERAL [None]
